FAERS Safety Report 10369610 (Version 1)
Quarter: 2014Q3

REPORT INFORMATION
  Report Type: Spontaneous
  Country: US (occurrence: US)
  Receive Date: 20140807
  Receipt Date: 20140807
  Transmission Date: 20150326
  Serious: No
  Sender: FDA-Public Use
  Company Number: US-AMGEN INC.-USASP2014025128

PATIENT
  Age: 29 Year
  Sex: Female

DRUGS (33)
  1. HERCEPTIN [Suspect]
     Active Substance: TRASTUZUMAB
     Dosage: 134 MG, UNK
     Route: 042
     Dates: start: 20120420
  2. CARBOPLATIN. [Concomitant]
     Active Substance: CARBOPLATIN
     Dosage: 215 MG, UNK
  3. NEUPOGEN [Suspect]
     Active Substance: FILGRASTIM
     Indication: PRODUCT USED FOR UNKNOWN INDICATION
     Dosage: 400 MUG, UNK
     Route: 058
  4. NEUPOGEN [Suspect]
     Active Substance: FILGRASTIM
     Dosage: 300 MUG, UNK
     Route: 058
  5. HERCEPTIN [Suspect]
     Active Substance: TRASTUZUMAB
     Dosage: 422 MG, UNK
     Route: 042
     Dates: start: 20130125
  6. TAXOTERE [Concomitant]
     Active Substance: DOCETAXEL
     Dosage: 65 MG, UNK
  7. HERCEPTIN [Suspect]
     Active Substance: TRASTUZUMAB
     Dosage: 138 MG, UNK
     Route: 042
     Dates: start: 20120413
  8. HERCEPTIN [Suspect]
     Active Substance: TRASTUZUMAB
     Dosage: 139 MG, UNK
     Route: 042
     Dates: start: 20120504
  9. KYTRIL [Suspect]
     Active Substance: GRANISETRON HYDROCHLORIDE
     Dosage: 850 MG, UNK
     Route: 058
  10. PRILOSEC [Concomitant]
     Active Substance: OMEPRAZOLE MAGNESIUM
     Dosage: UNK
  11. HERCEPTIN [Suspect]
     Active Substance: TRASTUZUMAB
     Dosage: 134 MG, UNK
     Route: 042
     Dates: start: 20120601
  12. PERTUZUMAB [Suspect]
     Active Substance: PERTUZUMAB
     Dosage: 420 MG, UNK
     Route: 042
     Dates: start: 20130215
  13. HERCEPTIN [Suspect]
     Active Substance: TRASTUZUMAB
     Indication: BREAST CANCER
     Dosage: 170 MG,1 IN 1 WK
     Route: 042
     Dates: start: 20120119
  14. HERCEPTIN [Suspect]
     Active Substance: TRASTUZUMAB
     Dosage: 125 MG, UNK
     Route: 042
     Dates: start: 20121109
  15. DEXAMETHASONE SODIUM PHOSPHATE [Concomitant]
     Active Substance: DEXAMETHASONE SODIUM PHOSPHATE
     Dosage: 8 MG, UNK
  16. HERCEPTIN [Suspect]
     Active Substance: TRASTUZUMAB
     Dosage: 146 MG, UNK
     Route: 042
     Dates: start: 20120309
  17. HERCEPTIN [Suspect]
     Active Substance: TRASTUZUMAB
     Dosage: 144 MG, UNK
     Route: 042
     Dates: start: 20120323
  18. HERCEPTIN [Suspect]
     Active Substance: TRASTUZUMAB
     Dosage: 140 MG, UNK
     Route: 042
     Dates: start: 20120427
  19. HERCEPTIN [Suspect]
     Active Substance: TRASTUZUMAB
     Dosage: 129 MG, UNK
     Route: 042
     Dates: start: 20120706
  20. VINORELBINE TARTRATE. [Concomitant]
     Active Substance: VINORELBINE TARTRATE
     Dosage: 42 MG, UNK
  21. ZOMETA [Concomitant]
     Active Substance: ZOLEDRONIC ACID
     Dosage: 4 MG, UNK
  22. HERCEPTIN [Suspect]
     Active Substance: TRASTUZUMAB
     Dosage: 132 MG, UNK
     Route: 042
     Dates: start: 20120615
  23. KYTRIL [Suspect]
     Active Substance: GRANISETRON HYDROCHLORIDE
     Indication: VOMITING
     Dosage: 670 MG, UNK
     Route: 042
  24. PEPCID [Concomitant]
     Active Substance: FAMOTIDINE
     Dosage: 20 MG, UNK
  25. BENADRYL [Concomitant]
     Active Substance: DIPHENHYDRAMINE HYDROCHLORIDE
     Dosage: 50 MG, UNK
  26. VENOFER [Concomitant]
     Active Substance: IRON SUCROSE
     Dosage: 200 MG, UNK
  27. TYLENOL WITH CODEINE [Concomitant]
     Active Substance: ACETAMINOPHEN\CODEINE PHOSPHATE
     Dosage: 1000 MG, UNK
     Route: 048
  28. HERCEPTIN [Suspect]
     Active Substance: TRASTUZUMAB
     Dosage: 164MG,1 IN 1 WK
     Route: 042
     Dates: start: 20120125
  29. HERCEPTIN [Suspect]
     Active Substance: TRASTUZUMAB
     Dosage: 160 MG,1 IN 1 WK
     Route: 042
     Dates: start: 20120201
  30. HERCEPTIN [Suspect]
     Active Substance: TRASTUZUMAB
     Dosage: 129 MG, UNK
     Route: 042
     Dates: start: 20120921
  31. HERCEPTIN [Suspect]
     Active Substance: TRASTUZUMAB
     Dosage: 119 MG, UNK
     Route: 042
     Dates: start: 20121214
  32. PERTUZUMAB [Suspect]
     Active Substance: PERTUZUMAB
     Indication: PRODUCT USED FOR UNKNOWN INDICATION
     Dosage: 840 MG, UNK
     Route: 042
     Dates: start: 20130125
  33. TAXOL [Concomitant]
     Active Substance: PACLITAXEL
     Dosage: 158 MG, UNK
     Route: 042

REACTIONS (19)
  - White blood cell count decreased [Unknown]
  - Nausea [Unknown]
  - Stomatitis [Unknown]
  - Decreased appetite [Unknown]
  - Dermatitis acneiform [Unknown]
  - Alopecia [Unknown]
  - Flushing [Unknown]
  - Blood pressure diastolic decreased [Unknown]
  - Fatigue [Unknown]
  - Nasopharyngitis [Unknown]
  - Pain [Unknown]
  - Depression [Unknown]
  - Anxiety [Unknown]
  - Heart rate increased [Unknown]
  - Paranasal sinus hypersecretion [Unknown]
  - Gastrooesophageal reflux disease [Unknown]
  - Rash maculo-papular [Unknown]
  - Vomiting [Unknown]
  - Back pain [Unknown]
